FAERS Safety Report 19092398 (Version 1)
Quarter: 2021Q2

REPORT INFORMATION
  Report Type: Spontaneous
  Country: US (occurrence: US)
  Receive Date: 20210405
  Receipt Date: 20210405
  Transmission Date: 20210717
  Serious: Yes (Hospitalization)
  Sender: FDA-Public Use
  Company Number: US-INTRA-CELLULAR THERAPIES, INC.-2021ICT00122

PATIENT
  Age: 53 Year
  Sex: Female
  Weight: 113.38 kg

DRUGS (23)
  1. NORVASC [Concomitant]
     Active Substance: AMLODIPINE BESYLATE
  2. VISTARIL [Suspect]
     Active Substance: HYDROXYZINE PAMOATE
     Dosage: UNK
     Dates: start: 202102
  3. KLONOPIN [Suspect]
     Active Substance: CLONAZEPAM
     Dosage: UNK
     Dates: start: 202102
  4. MELATONIN [Suspect]
     Active Substance: MELATONIN
     Dosage: UNK
     Dates: end: 202102
  5. LIPITOR [Concomitant]
     Active Substance: ATORVASTATIN CALCIUM
  6. CAPLYTA [Suspect]
     Active Substance: LUMATEPERONE
     Indication: SCHIZOAFFECTIVE DISORDER BIPOLAR TYPE
     Dosage: 42 MG, 1X/DAY
     Route: 048
     Dates: start: 20210209, end: 20210302
  7. VISTARIL [Suspect]
     Active Substance: HYDROXYZINE PAMOATE
     Dosage: UNK
     Dates: end: 202102
  8. METFORMIN ER [Concomitant]
     Active Substance: METFORMIN HYDROCHLORIDE
  9. PILOCARPINE. [Concomitant]
     Active Substance: PILOCARPINE
  10. COGENTIN [Concomitant]
     Active Substance: BENZTROPINE MESYLATE
  11. PREVACID [Concomitant]
     Active Substance: LANSOPRAZOLE
  12. MOBIC [Concomitant]
     Active Substance: MELOXICAM
  13. PRAZOSIN. [Concomitant]
     Active Substance: PRAZOSIN
  14. VESICARE [Concomitant]
     Active Substance: SOLIFENACIN SUCCINATE
  15. AMBIEN [Suspect]
     Active Substance: ZOLPIDEM TARTRATE
     Dosage: UNK
     Dates: end: 202102
  16. XANAX [Concomitant]
     Active Substance: ALPRAZOLAM
  17. CLARITIN [Concomitant]
     Active Substance: LORATADINE
  18. ZOFRAN [Concomitant]
     Active Substance: ONDANSETRON HYDROCHLORIDE
  19. REGLAN [Concomitant]
     Active Substance: METOCLOPRAMIDE HYDROCHLORIDE
  20. ZANTAC [Concomitant]
     Active Substance: RANITIDINE HYDROCHLORIDE
  21. KLONOPIN [Suspect]
     Active Substance: CLONAZEPAM
     Dosage: UNK
     Dates: end: 202102
  22. LAMICTAL [Concomitant]
     Active Substance: LAMOTRIGINE
  23. REQUIP [Concomitant]
     Active Substance: ROPINIROLE HYDROCHLORIDE

REACTIONS (8)
  - Encephalopathy [Recovered/Resolved]
  - Balance disorder [Recovered/Resolved]
  - Blood potassium decreased [Unknown]
  - Muscular weakness [Recovered/Resolved]
  - White blood cell count increased [Unknown]
  - Dysstasia [Recovered/Resolved]
  - Fall [Recovered/Resolved]
  - Off label use [Recovered/Resolved]

NARRATIVE: CASE EVENT DATE: 2021
